FAERS Safety Report 6549767-7 (Version None)
Quarter: 2010Q1

REPORT INFORMATION
  Report Type: 
  Country: None (occurrence: None)
  Receive Date: 20100119
  Receipt Date: 20100105
  Transmission Date: 20100710
  Serious: Yes (Hospitalization, Other)
  Sender: FDA-Public Use
  Company Number: 2008FR0189

PATIENT
  Age: 8 Year
  Sex: Male

DRUGS (1)
  1. ORFADIN [Suspect]
     Indication: TYROSINAEMIA
     Dosage: 0,63 MG/KG ORAL
     Route: 048
     Dates: start: 20010710

REACTIONS (4)
  - ALPHA 1 FOETOPROTEIN INCREASED [None]
  - DRUG INEFFECTIVE [None]
  - DRUG TOXICITY [None]
  - HEPATIC NEOPLASM MALIGNANT RESECTABLE [None]
